FAERS Safety Report 19239583 (Version 2)
Quarter: 2021Q2

REPORT INFORMATION
  Report Type: Spontaneous
  Country: DE (occurrence: DE)
  Receive Date: 20210511
  Receipt Date: 20210526
  Transmission Date: 20210717
  Serious: Yes (Other)
  Sender: FDA-Public Use
  Company Number: DE-ASTRAZENECA-2021A395161

PATIENT
  Age: 75 Year
  Sex: Male
  Weight: 82 kg

DRUGS (8)
  1. IMFINZI [Suspect]
     Active Substance: DURVALUMAB
     Indication: NON-SMALL CELL LUNG CANCER STAGE III
     Dosage: CHANGE TO DURVALUMAB FIX DOSE
     Route: 041
     Dates: start: 20210122
  2. IMFINZI [Suspect]
     Active Substance: DURVALUMAB
     Indication: NON-SMALL CELL LUNG CANCER STAGE III
     Route: 041
     Dates: end: 202102
  3. CISPLATIN. [Concomitant]
     Active Substance: CISPLATIN
  4. IMFINZI [Suspect]
     Active Substance: DURVALUMAB
     Indication: NON-SMALL CELL LUNG CANCER STAGE III
     Route: 041
     Dates: start: 20200513
  5. IMFINZI [Suspect]
     Active Substance: DURVALUMAB
     Indication: NON-SMALL CELL LUNG CANCER STAGE III
     Route: 041
     Dates: start: 20200513
  6. XARELTO [Concomitant]
     Active Substance: RIVAROXABAN
  7. IMFINZI [Suspect]
     Active Substance: DURVALUMAB
     Indication: NON-SMALL CELL LUNG CANCER STAGE III
     Route: 041
  8. IMFINZI [Suspect]
     Active Substance: DURVALUMAB
     Indication: NON-SMALL CELL LUNG CANCER STAGE III
     Dosage: CHANGE TO DURVALUMAB FIX DOSE
     Route: 041
     Dates: start: 20210122

REACTIONS (8)
  - Metastases to lymph nodes [Unknown]
  - Dizziness [Unknown]
  - Visual impairment [Unknown]
  - Non-small cell lung cancer [Not Recovered/Not Resolved]
  - Application site joint discomfort [Unknown]
  - Pain [Unknown]
  - Malignant neoplasm progression [Unknown]
  - Renal impairment [Unknown]

NARRATIVE: CASE EVENT DATE: 2021
